FAERS Safety Report 5806037-X (Version None)
Quarter: 2008Q3

REPORT INFORMATION
  Report Type: 
  Country: None (occurrence: None)
  Receive Date: 20080709
  Receipt Date: 20080709
  Transmission Date: 20090109
  Serious: No
  Sender: FDA-Public Use
  Company Number: None

PATIENT
  Age: 81 Year
  Sex: Male

DRUGS (2)
  1. ATENOLOL [Suspect]
     Indication: HYPERTENSION
     Dosage: 100 MG EVERYDAY PO
     Route: 048
     Dates: start: 20040817, end: 20080423
  2. METOPROLOL TARTRATE [Suspect]
     Dosage: 50 MG EVERY DAY PO
     Route: 048
     Dates: start: 20050901, end: 20080423

REACTIONS (2)
  - BRADYCARDIA [None]
  - FATIGUE [None]
